FAERS Safety Report 25060018 (Version 1)
Quarter: 2025Q1

REPORT INFORMATION
  Report Type: Report from Study
  Country: EG (occurrence: EG)
  Receive Date: 20250310
  Receipt Date: 20250310
  Transmission Date: 20250408
  Serious: Yes (Life-Threatening, Hospitalization, Other)
  Sender: NOVARTIS
  Company Number: EG-002147023-NVSC2025EG020104

PATIENT
  Age: 66 Year
  Sex: Male
  Weight: 100 kg

DRUGS (10)
  1. ENTRESTO [Suspect]
     Active Substance: SACUBITRIL\VALSARTAN
     Indication: Cardiac failure
     Dosage: 1 DOSAGE FORM, BID (50 MG, BID) (START DATE 5 YEARS AGO)
     Route: 048
  2. TORSEMIDE [Concomitant]
     Active Substance: TORSEMIDE
     Indication: Diuretic therapy
     Dosage: 3 DOSAGE FORM, QD (4 YEARS AGO)
     Route: 048
  3. TORSEMIDE [Concomitant]
     Active Substance: TORSEMIDE
     Dosage: 1 DOSAGE FORM, QD (20 MG) (STRENGTH: 20 MG)
     Route: 048
  4. TORSEMIDE [Concomitant]
     Active Substance: TORSEMIDE
     Dosage: 1 DOSAGE FORM (5 MG), QD (STRENGTH: 5 MG)
     Route: 048
  5. TORSEMIDE [Concomitant]
     Active Substance: TORSEMIDE
     Dosage: 1 DOSAGE FORM, TID (20 MG) (STRENGTH:20 MG)
     Route: 048
  6. TORSEMIDE [Concomitant]
     Active Substance: TORSEMIDE
     Dosage: 1 DOSAGE FORM, QD
     Route: 048
  7. TORSEMIDE [Concomitant]
     Active Substance: TORSEMIDE
     Dosage: 1 DOSAGE FORM, QD (STRENGTH: 20 MG)
     Route: 048
     Dates: start: 202412, end: 20250115
  8. TORSEMIDE [Concomitant]
     Active Substance: TORSEMIDE
     Dosage: 1 DOSAGE FORM, QD (STRENGTH: 5 MG)
     Route: 048
     Dates: start: 20250123, end: 20250201
  9. TORSEMIDE [Concomitant]
     Active Substance: TORSEMIDE
     Route: 065
  10. DAPAGLIFLOZIN [Concomitant]
     Active Substance: DAPAGLIFLOZIN
     Indication: Diabetes mellitus
     Dosage: 1 DOSAGE FORM, QD, 5 YEARS AGO
     Route: 065

REACTIONS (15)
  - Cardiac disorder [Not Recovered/Not Resolved]
  - Oedema [Recovering/Resolving]
  - Blood pressure decreased [Recovering/Resolving]
  - Injury [Not Recovered/Not Resolved]
  - Skin laceration [Unknown]
  - Erysipelas [Unknown]
  - Oedema peripheral [Unknown]
  - Gait inability [Unknown]
  - Feeding disorder [Unknown]
  - Insomnia [Unknown]
  - Pulmonary oedema [Not Recovered/Not Resolved]
  - Haemoptysis [Recovered/Resolved]
  - Peptic ulcer [Recovered/Resolved]
  - Fatigue [Not Recovered/Not Resolved]
  - Hypotension [Recovered/Resolved]

NARRATIVE: CASE EVENT DATE: 20241201
